FAERS Safety Report 10692558 (Version 12)
Quarter: 2016Q4

REPORT INFORMATION
  Report Type: Spontaneous
  Country: US (occurrence: US)
  Receive Date: 20150106
  Receipt Date: 20161118
  Transmission Date: 20170206
  Serious: No
  Sender: FDA-Public Use
  Company Number: US-PFIZER INC-2015000097

PATIENT
  Age: 55 Year
  Sex: Male
  Weight: 143 kg

DRUGS (57)
  1. VITAMIN D [Concomitant]
     Active Substance: CHOLECALCIFEROL
     Dosage: 50000 IU, WEEKLY
     Dates: start: 20150918
  2. HYDROCODONE/ACETAMINOPHEN [Concomitant]
     Active Substance: ACETAMINOPHEN\HYDROCODONE
     Indication: ARTHRALGIA
     Dosage: 1 DF, AS NEEDED(1 TABLET EVERY 6 HOURS AND MAX DAILY DOSE 4 TABLETS, 7.5-325MG TABLET))
     Route: 048
     Dates: start: 20140218
  3. FERROUS SULFATE. [Concomitant]
     Active Substance: FERROUS SULFATE
     Dosage: 1 DF, DAILY(1 TABLET DAILY)
     Dates: start: 20120618
  4. MAGNESIUM OXIDE. [Concomitant]
     Active Substance: MAGNESIUM OXIDE
     Dosage: 400 MG, DAILY(1 TABLET DAILY)
     Dates: start: 20140918
  5. ZOLPIDEM TARTRATE. [Concomitant]
     Active Substance: ZOLPIDEM TARTRATE
     Indication: SLEEP DISORDER
     Dosage: 10 MG, DAILY (ONE TABLET AT BEDTIME)
     Dates: start: 20130608
  6. VITAMIN D [Concomitant]
     Active Substance: CHOLECALCIFEROL
     Dosage: 50000 IU, 2X/WEEK, (TUES. + FRI.)
     Dates: start: 20150918
  7. HYDROCODONE/ACETAMINOPHEN [Concomitant]
     Active Substance: ACETAMINOPHEN\HYDROCODONE
     Indication: BACK PAIN
     Dosage: 1 DF, AS NEEDED(1 TABLET EVERY 6 HOURS AND MAX DAILY DOSE 4 TABLETS, 10-325MG TABLET)
     Route: 048
     Dates: start: 20150220
  8. IBUPROFEN. [Concomitant]
     Active Substance: IBUPROFEN
     Indication: MUSCULOSKELETAL PAIN
  9. VITAMIN B12 [Concomitant]
     Active Substance: CYANOCOBALAMIN
     Dosage: UNK
     Dates: start: 20150108
  10. FERROUS SULFATE. [Concomitant]
     Active Substance: FERROUS SULFATE
     Dosage: 2 DF, DAILY(2 TABLETS DAILY)
     Dates: start: 20140918
  11. DEXAMETHASONE. [Concomitant]
     Active Substance: DEXAMETHASONE
     Indication: CHEMOTHERAPY
     Dosage: 4 MG, AS NEEDED (ONE TABLET TWO TIMES DAILY AS NEEDED)
     Dates: start: 20120725
  12. SUTENT [Suspect]
     Active Substance: SUNITINIB MALATE
     Indication: EXTRASKELETAL CHONDROSARCOMA METASTATIC
     Dosage: 37.5 MG, 1X/DAY
     Route: 048
     Dates: start: 20141119, end: 201503
  13. METFORMIN [Concomitant]
     Active Substance: METFORMIN HYDROCHLORIDE
     Indication: DIABETES MELLITUS
     Dosage: 500 MG, DAILY (1 TABLET A DAY WITH DINNER)
     Dates: start: 20150822, end: 20150904
  14. METFORMIN [Concomitant]
     Active Substance: METFORMIN HYDROCHLORIDE
     Dosage: 1500 MG, 3X/DAY (TAKE 3 TABLETS A DAY WITH DINNER)
  15. ASTELIN /00884002/ [Concomitant]
     Dosage: 137 MCG NASAL SPRAY, 2 PUFFS IN EACH NOSTRIL ONCE A DAY
     Dates: start: 2012
  16. TRAMADOL HCL [Concomitant]
     Active Substance: TRAMADOL HYDROCHLORIDE
     Indication: BACK PAIN
     Dosage: 50MG TABLETS, 1-2 TABLETS EVERY 4-6 HOURS AS NEEDED (MAX 6 TABLETS PER DAY)
     Dates: start: 20130220
  17. IBUPROFEN. [Concomitant]
     Active Substance: IBUPROFEN
     Indication: BACK PAIN
     Dosage: 800 MG, AS NEEDED (TAKE 1 TABLET 3 TIMES DAILY)
     Dates: start: 20130323
  18. IBUPROFEN. [Concomitant]
     Active Substance: IBUPROFEN
     Indication: PAIN IN EXTREMITY
  19. ULTRACET [Concomitant]
     Active Substance: ACETAMINOPHEN\TRAMADOL HYDROCHLORIDE
     Indication: BACK PAIN
     Dosage: 37.5 MG, UNK
     Dates: start: 20141125
  20. CLONIDINE. [Concomitant]
     Active Substance: CLONIDINE
     Indication: HYPERTENSION
     Dosage: 0.2 MG, 2X/DAY(ONE TABLET TWICE A DAY)
     Dates: start: 2010
  21. VITAMIN D [Concomitant]
     Active Substance: CHOLECALCIFEROL
     Dosage: UNK (HIGHER DOSE OF VIT D STARTED)
  22. PRILOSEC [Concomitant]
     Active Substance: OMEPRAZOLE MAGNESIUM
     Dosage: 40 MG, DAILY(ONE CAPSULE DAILY)
     Route: 048
     Dates: start: 20140211
  23. SUCRALFATE. [Concomitant]
     Active Substance: SUCRALFATE
     Dosage: 1 MG, AS NEEDED(ONE TABLET 4 TIMES A DAY)
     Route: 048
     Dates: start: 20130510
  24. BABY ASPIRIN [Concomitant]
     Active Substance: ASPIRIN
     Dosage: UNK
  25. METFORMIN [Concomitant]
     Active Substance: METFORMIN HYDROCHLORIDE
     Dosage: 1000 MG, 500 MG DAILY (TAKE 2 TABLETS A DAY WITH DINNER)
     Dates: start: 20150905, end: 20150918
  26. NORVASC [Concomitant]
     Active Substance: AMLODIPINE BESYLATE
     Indication: HYPERTENSION
     Dosage: 10 MG, 1X/DAY(ONE TABLET EACH DAY)
     Dates: start: 2010
  27. SIMVASTATIN. [Concomitant]
     Active Substance: SIMVASTATIN
     Indication: BLOOD CHOLESTEROL ABNORMAL
     Dosage: 20 MG, DAILY (AT BED TIME)
     Dates: start: 2010
  28. POTASSIUM CHLORIDE. [Concomitant]
     Active Substance: POTASSIUM CHLORIDE
     Indication: DIABETES MELLITUS
     Dosage: 10 MEQ, DAILY(THREE TABLETS DAILY)
     Dates: start: 20121022
  29. COZAAR [Concomitant]
     Active Substance: LOSARTAN POTASSIUM
     Indication: HYPERTENSION
     Dosage: 50 MG, 1X/DAY(ONE TABLET EACH DAY)
     Dates: start: 20120511
  30. TRAMADOL/ACETAMINOPHEN [Concomitant]
     Active Substance: ACETAMINOPHEN\TRAMADOL
     Indication: BACK PAIN
     Dosage: 37.5MG/325MG TABLETS, TAKE 1 OR 2 TABLETS EVERY 8 HOURS - MAX DAILY DOSE IS 6 TABLETS
     Dates: start: 20141125
  31. VITAMIN B12 [Concomitant]
     Active Substance: CYANOCOBALAMIN
     Dosage: UNK
     Dates: start: 20160614
  32. FLONASE [Concomitant]
     Active Substance: FLUTICASONE PROPIONATE
     Dosage: 50 ?G, 1X/DAY(2 PUFFS IN EACH NOSTRIL ONCE A DAY)
     Route: 045
  33. DIAZEPAM. [Concomitant]
     Active Substance: DIAZEPAM
     Dosage: 10MG TABLET)1TABLET 2 TIMES PER DAY (WHEN NEEDED)
     Dates: start: 20130323
  34. SUTENT [Suspect]
     Active Substance: SUNITINIB MALATE
     Indication: EXTRASKELETAL MYXOID CHONDROSARCOMA
     Dosage: UNK
  35. SUTENT [Suspect]
     Active Substance: SUNITINIB MALATE
     Dosage: 37.5 MG, OTHER DAILY (DAILY)
     Route: 048
     Dates: start: 20150322
  36. ASPIRIN. [Concomitant]
     Active Substance: ASPIRIN
     Indication: HYPERTENSION
     Dosage: 81 MG, DAILY
     Dates: start: 2010
  37. DULERA [Concomitant]
     Active Substance: FORMOTEROL FUMARATE DIHYDRATE\MOMETASONE FUROATE
     Dosage: UNK, 2X/DAY, X(200MCG/5MCG INHALATION AEROSOL, 2 PUFFS IN MORNING AND 2 PUFFS IN THE EVENING)
     Route: 055
     Dates: start: 20120604
  38. HYDROCODONE/ACETAMINOPHEN [Concomitant]
     Active Substance: ACETAMINOPHEN\HYDROCODONE
     Indication: PAIN IN EXTREMITY
  39. TRAMADOL HCL [Concomitant]
     Active Substance: TRAMADOL HYDROCHLORIDE
     Indication: PAIN IN EXTREMITY
  40. SINGULAIR [Concomitant]
     Active Substance: MONTELUKAST SODIUM
     Indication: HYPERSENSITIVITY
     Dosage: 10 MG, DAILY (ONE TABLET DAILY AT NIGHT)
     Dates: start: 20120511
  41. SUTENT [Suspect]
     Active Substance: SUNITINIB MALATE
     Indication: LUNG CANCER METASTATIC
     Dosage: 25 MG, DAILY
     Route: 048
     Dates: start: 20150322
  42. ULTRACET [Concomitant]
     Active Substance: ACETAMINOPHEN\TRAMADOL HYDROCHLORIDE
     Indication: PAIN IN EXTREMITY
  43. ALLEGRA [Concomitant]
     Active Substance: FEXOFENADINE HYDROCHLORIDE
     Indication: ANTIALLERGIC THERAPY
     Dosage: 180 MG, DAILY(1 TABLET DAILY)
     Dates: start: 2010
  44. TRAMADOL/ACETAMINOPHEN [Concomitant]
     Active Substance: ACETAMINOPHEN\TRAMADOL
     Indication: PAIN IN EXTREMITY
  45. VITAMIN B12 [Concomitant]
     Active Substance: CYANOCOBALAMIN
     Dosage: UNK
     Dates: start: 20160503
  46. ALBUTEROL SULFATE. [Concomitant]
     Active Substance: ALBUTEROL SULFATE
     Indication: COUGH
     Dosage: INHALATION AEROSOL 90 MEG PER ACTUATION
     Dates: start: 20130406
  47. ALBUTEROL SULFATE. [Concomitant]
     Active Substance: ALBUTEROL SULFATE
     Dosage: 0.083% (2.5MG/3ML) 25X3ML1 VIAL VIA NEBULIZER EVERY 4 - 6 HOURS AS NEEDED
     Dates: start: 20140507
  48. METOCLOPRAMIDE. [Concomitant]
     Active Substance: METOCLOPRAMIDE
     Indication: NAUSEA
     Dosage: 10 MG, AS NEEDED(ONE TABLET EVERY 4 - 6 HOURS AS NEEDED)
     Dates: start: 20120725
  49. METFORMIN [Concomitant]
     Active Substance: METFORMIN HYDROCHLORIDE
     Indication: DIABETES MELLITUS
     Dosage: 1 DF, DAILY
     Route: 048
  50. SUTENT [Suspect]
     Active Substance: SUNITINIB MALATE
     Dosage: 25 MG, CYCLIC (1 CAPSULE DAILY FOR 4 WEEKS, THEN OFF 2 WEEKS)
     Route: 048
  51. POTASSIUM [Concomitant]
     Active Substance: POTASSIUM
     Dosage: 3 DF, DAILY(3 TABLETS DAILY)
     Dates: start: 20121022
  52. PROAIR HFA [Concomitant]
     Active Substance: ALBUTEROL SULFATE
     Indication: COUGH
     Dosage: UNK (2 INHALATIONS EVERY 4 TO 6 HOURS)
     Dates: start: 20130406
  53. VITAMIN B12 [Concomitant]
     Active Substance: CYANOCOBALAMIN
     Dosage: 1 DF, EVERY 3 WEEKS(ONE INJECTION EVERY MOUTH FOR SIX MOUTHS)
     Dates: start: 20120618, end: 20121119
  54. SINGULAIR [Concomitant]
     Active Substance: MONTELUKAST SODIUM
     Dosage: 10 MG, DAILY (ONE TABLET DAILY AT NIGHT)
     Dates: start: 20130504
  55. TRAZODONE [Concomitant]
     Active Substance: TRAZODONE HYDROCHLORIDE
     Indication: SLEEP DISORDER
     Dosage: 50 MG, 1X/DAY (1 TABLET BY MOUTH AT BEDTIME)
     Route: 048
     Dates: start: 20150314
  56. OXYCODONE AND ACETAMINOPHEN [Concomitant]
     Active Substance: ACETAMINOPHEN\OXYCODONE HYDROCHLORIDE
     Indication: ARTHRALGIA
     Dosage: TAKE 1 TABLET EVERY 6 HOURS AS NEEDED FOR KNEE PAIN MAX DAILY DOSE IS 4 TABLETS, 10/325 TABLETS
     Dates: start: 20150203
  57. LEVOTHYROXINE. [Concomitant]
     Active Substance: LEVOTHYROXINE
     Indication: THYROID DISORDER
     Dosage: 50 UG, DAILY (1 TABLET DAILY)
     Dates: start: 20150918

REACTIONS (35)
  - Asthenia [Unknown]
  - Ephelides [Unknown]
  - Dyspnoea exertional [Unknown]
  - Arthralgia [Unknown]
  - Hyperkeratosis [Unknown]
  - Temperature intolerance [Unknown]
  - Diarrhoea [Unknown]
  - Pain in extremity [Unknown]
  - Pain in extremity [Not Recovered/Not Resolved]
  - Muscular weakness [Not Recovered/Not Resolved]
  - Disease progression [Unknown]
  - Limb discomfort [Unknown]
  - Product use issue [Unknown]
  - Chills [Not Recovered/Not Resolved]
  - Dry skin [Not Recovered/Not Resolved]
  - Weight decreased [Unknown]
  - Extraskeletal chondrosarcoma metastatic [Unknown]
  - Photosensitivity reaction [Unknown]
  - Pallor [Unknown]
  - Skin papilloma [Unknown]
  - Erythema [Unknown]
  - Insomnia [Unknown]
  - Fatigue [Unknown]
  - Rib fracture [Unknown]
  - Capillary disorder [Unknown]
  - Skin haemorrhage [Unknown]
  - Skin fissures [Unknown]
  - Thyroid function test abnormal [Not Recovered/Not Resolved]
  - Myalgia [Not Recovered/Not Resolved]
  - Blood pressure increased [Not Recovered/Not Resolved]
  - Nasopharyngitis [Not Recovered/Not Resolved]
  - Constipation [Not Recovered/Not Resolved]
  - Skin exfoliation [Not Recovered/Not Resolved]
  - Skin discolouration [Unknown]
  - Rash macular [Not Recovered/Not Resolved]

NARRATIVE: CASE EVENT DATE: 20141119
